FAERS Safety Report 8024989-7 (Version None)
Quarter: 2012Q1

REPORT INFORMATION
  Report Type: 
  Country: None (occurrence: None)
  Receive Date: 20120105
  Receipt Date: 20111221
  Transmission Date: 20120608
  Serious: Yes (Hospitalization, Other)
  Sender: FDA-Public Use
  Company Number: ES-CELGENEUS-144-50794-11113117

PATIENT
  Sex: Male
  Weight: 69 kg

DRUGS (9)
  1. ATENOLOL [Concomitant]
     Indication: CARDIOMYOPATHY
     Route: 065
  2. NITROGLYCERIN [Concomitant]
     Indication: CARDIOMYOPATHY
     Route: 065
  3. PANAET [Concomitant]
     Indication: CARDIOMYOPATHY
     Route: 065
     Dates: start: 20110201
  4. LOVAZA [Concomitant]
     Indication: CARDIOMYOPATHY
     Route: 065
  5. LANSOPRAZOLE [Concomitant]
     Indication: CARDIOMYOPATHY
     Route: 065
  6. TAMSULOSIN HCL [Concomitant]
     Indication: CARDIOMYOPATHY
     Route: 065
  7. INDAPAMIDE [Concomitant]
     Indication: CARDIOMYOPATHY
     Route: 065
  8. VIDAZA [Suspect]
     Dosage: 130 MILLIGRAM
     Route: 050
     Dates: start: 20110225, end: 20110303
  9. ATACAND [Concomitant]
     Indication: CARDIOMYOPATHY
     Route: 065

REACTIONS (2)
  - RESPIRATORY TRACT INFECTION [None]
  - FEBRILE NEUTROPENIA [None]
